FAERS Safety Report 9878676 (Version 3)
Quarter: 2014Q4

REPORT INFORMATION
  Report Type: Spontaneous
  Country: US (occurrence: US)
  Receive Date: 20140206
  Receipt Date: 20141028
  Transmission Date: 20150529
  Serious: Yes (Other)
  Sender: FDA-Public Use
  Company Number: US-PFIZER INC-2014032997

PATIENT
  Age: 64 Year
  Sex: Female

DRUGS (12)
  1. ASACOL [Concomitant]
     Active Substance: MESALAMINE
     Dosage: 400 MG, 3X/DAY
     Dates: start: 20090424
  2. LIPITOR [Suspect]
     Active Substance: ATORVASTATIN CALCIUM
     Indication: CARDIOVASCULAR EVENT PROPHYLAXIS
     Dosage: 10 MG, UNK
     Route: 048
     Dates: start: 19980814
  3. LIPITOR [Suspect]
     Active Substance: ATORVASTATIN CALCIUM
     Indication: BLOOD TRIGLYCERIDES INCREASED
     Dosage: 20 MG, UNK
     Route: 048
     Dates: start: 20001026
  4. CYMBALTA [Concomitant]
     Active Substance: DULOXETINE HYDROCHLORIDE
     Dosage: 30 MG, UNK
     Dates: start: 20090501
  5. LIPITOR [Suspect]
     Active Substance: ATORVASTATIN CALCIUM
     Indication: LOW DENSITY LIPOPROTEIN INCREASED
     Dosage: 20 MG, 1X/DAY
     Route: 048
     Dates: start: 199804
  6. LIPITOR [Suspect]
     Active Substance: ATORVASTATIN CALCIUM
     Dosage: 80 MG, UNK
     Route: 048
     Dates: start: 20080507
  7. ASA [Concomitant]
     Active Substance: ASPIRIN
     Dosage: 8 MG, DAILY
     Dates: start: 20090501
  8. NEXIUM [Concomitant]
     Active Substance: ESOMEPRAZOLE MAGNESIUM
     Indication: GASTROINTESTINAL DISORDER
     Dosage: 2-3 TABLETS DAILY
     Dates: start: 2001
  9. CLINDAMYCIN [Concomitant]
     Active Substance: CLINDAMYCIN\CLINDAMYCIN PHOSPHATE
     Dosage: 150 MG, UNK
     Dates: start: 20090430
  10. METOPROLOL [Concomitant]
     Active Substance: METOPROLOL
     Dosage: 25 MG, 1X/DAY
     Route: 048
     Dates: start: 20090501
  11. THYROXINE [Concomitant]
     Active Substance: LEVOTHYROXINE
     Dosage: 1 UG, UNK
     Dates: start: 20090501
  12. BELLADONNA [Concomitant]
     Active Substance: ATROPA BELLADONNA
     Dosage: 30 MG, 3X/DAY
     Dates: start: 20090501

REACTIONS (1)
  - Type 2 diabetes mellitus [Not Recovered/Not Resolved]

NARRATIVE: CASE EVENT DATE: 20090507
